FAERS Safety Report 9680027 (Version 1)
Quarter: 2013Q4

REPORT INFORMATION
  Report Type: Spontaneous
  Country: US (occurrence: US)
  Receive Date: 20131110
  Receipt Date: 20131110
  Transmission Date: 20140711
  Serious: No
  Sender: FDA-Public Use
  Company Number: US-SANOFI-AVENTIS-2013SA093131

PATIENT
  Sex: Male

DRUGS (1)
  1. KYNAMRO [Suspect]
     Dates: start: 20130912

REACTIONS (1)
  - Fatigue [Unknown]
